FAERS Safety Report 19045569 (Version 5)
Quarter: 2021Q3

REPORT INFORMATION
  Report Type: Report from Study
  Country: US (occurrence: US)
  Receive Date: 20210322
  Receipt Date: 20210706
  Transmission Date: 20211014
  Serious: Yes (Hospitalization)
  Sender: FDA-Public Use
  Company Number: US-SEATTLE GENETICS-2021SGN01429

PATIENT
  Sex: Female

DRUGS (11)
  1. DILTIAZEM HCL [Concomitant]
     Active Substance: DILTIAZEM HYDROCHLORIDE
     Dosage: 240 MG
  2. ELIQUIS [Concomitant]
     Active Substance: APIXABAN
     Dosage: 5 MG
  3. ACYCLOVIR                          /00587301/ [Concomitant]
     Active Substance: ACYCLOVIR
  4. ATIVAN [Concomitant]
     Active Substance: LORAZEPAM
     Dosage: 0.5 MG
  5. TUCATINIB [Suspect]
     Active Substance: TUCATINIB
     Indication: BREAST CANCER FEMALE
     Dosage: 150 MG
     Route: 048
     Dates: end: 20210416
  6. TUCATINIB [Suspect]
     Active Substance: TUCATINIB
     Dosage: 150 MG
     Dates: start: 20210422
  7. BISOPROLOL FUMARATE. [Concomitant]
     Active Substance: BISOPROLOL FUMARATE
     Dosage: 5 MG
  8. PROCHLORPERAZINE MALEATE. [Concomitant]
     Active Substance: PROCHLORPERAZINE MALEATE
     Dosage: 5 MG
  9. EXEMESTANE. [Concomitant]
     Active Substance: EXEMESTANE
     Dosage: 25 MG
  10. TUCATINIB [Suspect]
     Active Substance: TUCATINIB
     Dosage: 150 UNK
  11. CULTURELLE HEALTH + WELLNESS PROBIOTIC [Concomitant]

REACTIONS (24)
  - Peripheral swelling [Unknown]
  - Heart rate increased [Unknown]
  - Sinus disorder [Unknown]
  - Dry eye [Unknown]
  - Rash macular [Unknown]
  - Cough [Unknown]
  - Dyspnoea [Unknown]
  - Alopecia [Unknown]
  - Diarrhoea [Unknown]
  - Dry mouth [Unknown]
  - Abdominal discomfort [Unknown]
  - Pyrexia [Unknown]
  - Skin exfoliation [Unknown]
  - Blood bilirubin increased [Unknown]
  - Abdominal pain upper [Unknown]
  - Neuropathy peripheral [Unknown]
  - Decreased appetite [Unknown]
  - Weight decreased [Unknown]
  - Joint swelling [Unknown]
  - Nausea [Unknown]
  - Pneumonia [Unknown]
  - Anaemia [Unknown]
  - Appetite disorder [Unknown]
  - Memory impairment [Unknown]
